FAERS Safety Report 13558597 (Version 3)
Quarter: 2017Q2

REPORT INFORMATION
  Report Type: Spontaneous
  Country: US (occurrence: US)
  Receive Date: 20170518
  Receipt Date: 20170626
  Transmission Date: 20170830
  Serious: Yes (Life-Threatening, Hospitalization, Other)
  Sender: FDA-Public Use
  Company Number: US-AUROBINDO-AUR-APL-2017-34035

PATIENT
  Age: 63 Year
  Sex: Female

DRUGS (3)
  1. FEXOFENADINE W/PSEUDOEPHEDRINE [Interacting]
     Active Substance: FEXOFENADINE\PSEUDOEPHEDRINE
     Indication: NASAL DECONGESTION THERAPY
     Route: 065
  2. METOPROLOL. [Interacting]
     Active Substance: METOPROLOL
     Indication: ATRIAL FIBRILLATION
     Route: 042
  3. METOPROLOL. [Suspect]
     Active Substance: METOPROLOL
     Indication: ATRIAL FIBRILLATION
     Route: 048

REACTIONS (8)
  - Arteriospasm coronary [Recovered/Resolved]
  - Troponin T increased [Recovered/Resolved]
  - Drug interaction [Unknown]
  - Acute myocardial infarction [Unknown]
  - Chest pain [Recovered/Resolved]
  - Bradycardia [Recovered/Resolved]
  - Hypotension [Recovered/Resolved]
  - Electrocardiogram ST segment elevation [Recovered/Resolved]
